FAERS Safety Report 4532551-3 (Version None)
Quarter: 2004Q4

REPORT INFORMATION
  Report Type: 
  Country: None (occurrence: None)
  Receive Date: 20041206
  Receipt Date: 20040525
  Transmission Date: 20050328
  Serious: Yes (Other)
  Sender: FDA-Public Use
  Company Number: PHEH2004US05836

PATIENT
  Sex: Female

DRUGS (9)
  1. VIVELLE [Suspect]
     Indication: HORMONE REPLACEMENT THERAPY
  2. ESTRACE [Suspect]
  3. ESTRATAB [Suspect]
  4. ESTROPIPATE [Suspect]
  5. PREMPRO [Suspect]
  6. PREMARIN [Suspect]
  7. PROVERA [Suspect]
  8. ESTROGENS (NO INGREDIENTS/SUBSTANCES) [Suspect]
  9. MEDROXYPROGESTERONE ACETATE [Suspect]

REACTIONS (2)
  - BREAST CANCER [None]
  - BREAST OPERATION [None]
